FAERS Safety Report 13558139 (Version 2)
Quarter: 2017Q2

REPORT INFORMATION
  Report Type: Spontaneous
  Country: US (occurrence: US)
  Receive Date: 20170517
  Receipt Date: 20170630
  Transmission Date: 20170830
  Serious: Yes (Hospitalization, Other)
  Sender: FDA-Public Use
  Company Number: US-ALLERGAN-1719554US

PATIENT
  Age: 71 Year
  Sex: Female

DRUGS (8)
  1. METOPROLOL. [Suspect]
     Active Substance: METOPROLOL
     Dosage: 25 MG, QD
     Route: 048
     Dates: start: 2016
  2. COMBIGAN [Suspect]
     Active Substance: BRIMONIDINE TARTRATE\TIMOLOL MALEATE
     Indication: GLAUCOMA
     Dosage: 2 GTT, BID
     Route: 047
     Dates: start: 201609, end: 201609
  3. DIAZEPAM. [Suspect]
     Active Substance: DIAZEPAM
     Indication: ANXIETY
     Dosage: 5 MG, BID
     Route: 048
  4. METFORMIN [Concomitant]
     Active Substance: METFORMIN HYDROCHLORIDE
     Dosage: 2 DF, AROUND 10 PM
     Route: 048
  5. METOPROLOL. [Suspect]
     Active Substance: METOPROLOL
     Indication: HYPERTENSION
     Dosage: 125 MG, QD
     Route: 048
     Dates: end: 2016
  6. COMBIGAN [Suspect]
     Active Substance: BRIMONIDINE TARTRATE\TIMOLOL MALEATE
     Dosage: 2 GTT, TID
     Route: 047
     Dates: start: 20170511, end: 2017
  7. TRAVATAN Z [Concomitant]
     Active Substance: TRAVOPROST
     Indication: GLAUCOMA
     Dosage: UNK UNK, QHS
     Route: 047
  8. ATACAND [Concomitant]
     Active Substance: CANDESARTAN CILEXETIL
     Indication: HYPERTENSION
     Dosage: 12.5 MG, QD

REACTIONS (12)
  - Inappropriate schedule of drug administration [Unknown]
  - Pain [Recovered/Resolved]
  - Asthenia [Recovered/Resolved]
  - Postoperative wound infection [Recovered/Resolved]
  - Balance disorder [Not Recovered/Not Resolved]
  - Nausea [Not Recovered/Not Resolved]
  - Intraocular pressure increased [Unknown]
  - Fatigue [Unknown]
  - Somnolence [Recovered/Resolved]
  - Bradycardia [Recovered/Resolved]
  - Myalgia [Not Recovered/Not Resolved]
  - Ocular hyperaemia [Not Recovered/Not Resolved]

NARRATIVE: CASE EVENT DATE: 201609
